FAERS Safety Report 25364717 (Version 2)
Quarter: 2025Q2

REPORT INFORMATION
  Report Type: Spontaneous
  Country: PL (occurrence: PL)
  Receive Date: 20250527
  Receipt Date: 20250610
  Transmission Date: 20250717
  Serious: Yes (Other)
  Sender: MYLAN
  Company Number: PL-RECORDATI-2025003235

PATIENT
  Age: 61 Year
  Sex: Male

DRUGS (28)
  1. METOPROLOL [Suspect]
     Active Substance: METOPROLOL
     Indication: Atrial fibrillation
  2. METOPROLOL [Suspect]
     Active Substance: METOPROLOL
     Indication: Cardiac failure
     Route: 065
  3. METOPROLOL [Suspect]
     Active Substance: METOPROLOL
     Route: 065
  4. METOPROLOL [Suspect]
     Active Substance: METOPROLOL
  5. IBUPROFEN [Suspect]
     Active Substance: IBUPROFEN
     Indication: Atrial fibrillation
  6. IBUPROFEN [Suspect]
     Active Substance: IBUPROFEN
     Indication: Cardiac failure
     Route: 065
  7. IBUPROFEN [Suspect]
     Active Substance: IBUPROFEN
     Route: 065
  8. IBUPROFEN [Suspect]
     Active Substance: IBUPROFEN
  9. RIVAROXABAN [Suspect]
     Active Substance: RIVAROXABAN
     Indication: Atrial fibrillation
  10. RIVAROXABAN [Suspect]
     Active Substance: RIVAROXABAN
     Indication: Cardiac failure
     Route: 065
  11. RIVAROXABAN [Suspect]
     Active Substance: RIVAROXABAN
     Route: 065
  12. RIVAROXABAN [Suspect]
     Active Substance: RIVAROXABAN
  13. DAPAGLIFLOZIN [Suspect]
     Active Substance: DAPAGLIFLOZIN
     Indication: Atrial fibrillation
  14. DAPAGLIFLOZIN [Suspect]
     Active Substance: DAPAGLIFLOZIN
     Indication: Cardiac failure
     Route: 065
  15. DAPAGLIFLOZIN [Suspect]
     Active Substance: DAPAGLIFLOZIN
     Route: 065
  16. DAPAGLIFLOZIN [Suspect]
     Active Substance: DAPAGLIFLOZIN
  17. FLECAINIDE [Suspect]
     Active Substance: FLECAINIDE
     Indication: Atrial fibrillation
     Dosage: 200 MILLIGRAM, QD
  18. FLECAINIDE [Suspect]
     Active Substance: FLECAINIDE
     Indication: Cardiac failure
     Dosage: 200 MILLIGRAM, QD
     Route: 065
  19. FLECAINIDE [Suspect]
     Active Substance: FLECAINIDE
     Dosage: 200 MILLIGRAM, QD
     Route: 065
  20. FLECAINIDE [Suspect]
     Active Substance: FLECAINIDE
     Dosage: 200 MILLIGRAM, QD
  21. ZOFENOPRIL [Suspect]
     Active Substance: ZOFENOPRIL
     Indication: Atrial fibrillation
  22. ZOFENOPRIL [Suspect]
     Active Substance: ZOFENOPRIL
     Indication: Cardiac failure
     Route: 065
  23. ZOFENOPRIL [Suspect]
     Active Substance: ZOFENOPRIL
     Route: 065
  24. ZOFENOPRIL [Suspect]
     Active Substance: ZOFENOPRIL
  25. TOLPERISONE [Concomitant]
     Active Substance: TOLPERISONE
     Indication: Sacral pain
     Dosage: 150 MILLIGRAM, BID
  26. TOLPERISONE [Concomitant]
     Active Substance: TOLPERISONE
     Dosage: 150 MILLIGRAM, BID
     Route: 048
  27. TOLPERISONE [Concomitant]
     Active Substance: TOLPERISONE
     Dosage: 150 MILLIGRAM, BID
     Route: 048
  28. TOLPERISONE [Concomitant]
     Active Substance: TOLPERISONE
     Dosage: 150 MILLIGRAM, BID

REACTIONS (3)
  - Ventricular arrhythmia [Unknown]
  - Enzyme inhibition [Unknown]
  - Off label use [Unknown]
